FAERS Safety Report 14967284 (Version 1)
Quarter: 2018Q2

REPORT INFORMATION
  Report Type: Report from Study
  Country: IT (occurrence: IT)
  Receive Date: 20180604
  Receipt Date: 20180604
  Transmission Date: 20180711
  Serious: Yes (Other)
  Sender: FDA-Public Use
  Company Number: IT-CHEPLA-C20170255_C

PATIENT
  Age: 40 Year
  Sex: Female

DRUGS (3)
  1. MITOXANTRONE [Suspect]
     Active Substance: MITOXANTRONE HYDROCHLORIDE
     Indication: ACUTE PROMYELOCYTIC LEUKAEMIA
     Dosage: TREATED ACCORDING TO THE AIDA PROTOCOL
  2. IDARUBICINE [Suspect]
     Active Substance: IDARUBICIN
     Indication: ACUTE PROMYELOCYTIC LEUKAEMIA
     Dosage: TREATED ACCORDING TO THE AIDA PROTOCOL
  3. ATRA [Suspect]
     Active Substance: TRETINOIN
     Indication: ACUTE PROMYELOCYTIC LEUKAEMIA
     Dosage: TREATED ACCORDING TO THE AIDA PROTOCOL

REACTIONS (1)
  - Acute lymphocytic leukaemia [Recovered/Resolved]
